FAERS Safety Report 20750827 (Version 1)
Quarter: 2022Q2

REPORT INFORMATION
  Report Type: Report from Study
  Country: CA (occurrence: CA)
  Receive Date: 20220426
  Receipt Date: 20220426
  Transmission Date: 20220721
  Serious: Yes (Hospitalization, Other)
  Sender: FDA-Public Use
  Company Number: CA-BRISTOL-MYERS SQUIBB COMPANY-2022-014276

PATIENT
  Age: 83 Year
  Sex: Female

DRUGS (1)
  1. REBLOZYL [Suspect]
     Active Substance: LUSPATERCEPT-AAMT
     Indication: Myelodysplastic syndrome
     Dosage: UNIT: MG; DOSE: 1/3 WEEK
     Route: 058
     Dates: start: 20210921, end: 20220222

REACTIONS (3)
  - Angina pectoris [Unknown]
  - Pain in extremity [Unknown]
  - Bone pain [Unknown]

NARRATIVE: CASE EVENT DATE: 20220222
